FAERS Safety Report 5259136-8 (Version None)
Quarter: 2007Q1

REPORT INFORMATION
  Report Type: 
  Country: None (occurrence: None)
  Receive Date: 20070308
  Receipt Date: 20070302
  Transmission Date: 20070707
  Serious: Yes (Hospitalization)
  Sender: FDA-Public Use
  Company Number: US-JNJFOC-20070300914

PATIENT
  Sex: Female

DRUGS (14)
  1. IMODIUM [Suspect]
     Indication: VIRAL DIARRHOEA
  2. REBIF [Concomitant]
     Route: 058
  3. REBIF [Concomitant]
     Indication: MULTIPLE SCLEROSIS
     Route: 058
  4. MORPHINE [Concomitant]
     Indication: FIBROMYALGIA
  5. MORPHINE [Concomitant]
     Indication: PAIN
  6. EFFEXOR [Concomitant]
     Indication: DEPRESSION
  7. EFFEXOR [Concomitant]
     Indication: PAIN
  8. BACLOFEN [Concomitant]
  9. BACLOFEN [Concomitant]
     Indication: MUSCLE SPASMS
  10. TRAZODONE HCL [Concomitant]
  11. TRAZODONE HCL [Concomitant]
     Indication: SLEEP DISORDER THERAPY
  12. WATER PILLS [Concomitant]
  13. WATER PILLS [Concomitant]
     Indication: FLUID RETENTION
  14. POTASSIUM ACETATE [Concomitant]
     Dosage: 12 DECREASED TO 6

REACTIONS (1)
  - SMALL INTESTINAL OBSTRUCTION [None]
